FAERS Safety Report 23073676 (Version 3)
Quarter: 2024Q1

REPORT INFORMATION
  Report Type: Report from Study
  Country: US (occurrence: US)
  Receive Date: 20231017
  Receipt Date: 20240115
  Transmission Date: 20240410
  Serious: Yes (Other)
  Sender: FDA-Public Use
  Company Number: US-ABBVIE-5450992

PATIENT
  Age: 20 Year
  Sex: Female

DRUGS (2)
  1. RINVOQ [Suspect]
     Active Substance: UPADACITINIB
     Indication: Crohn^s disease
     Route: 048
     Dates: start: 2023
  2. RINVOQ [Suspect]
     Active Substance: UPADACITINIB
     Indication: Crohn^s disease
     Dosage: THE LAST ADMIN DATE WAS 2023.
     Route: 048
     Dates: start: 20230622

REACTIONS (5)
  - Post procedural complication [Recovered/Resolved]
  - Ileostomy [Recovered/Resolved]
  - Intestinal perforation [Recovered/Resolved]
  - Nasopharyngitis [Not Recovered/Not Resolved]
  - Respiratory syncytial virus infection [Recovering/Resolving]

NARRATIVE: CASE EVENT DATE: 20230901
